FAERS Safety Report 15737125 (Version 1)
Quarter: 2018Q4

REPORT INFORMATION
  Report Type: Spontaneous
  Country: US (occurrence: US)
  Receive Date: 20181218
  Receipt Date: 20181218
  Transmission Date: 20190205
  Serious: No
  Sender: FDA-Public Use
  Company Number: US-SA-2018SA342523

PATIENT

DRUGS (1)
  1. KEVZARA [Suspect]
     Active Substance: SARILUMAB
     Dosage: 200 MG, UNK
     Route: 058

REACTIONS (5)
  - Injection site erythema [Unknown]
  - Injection site rash [Unknown]
  - Tachycardia [Unknown]
  - Injection site pruritus [Unknown]
  - Injection site swelling [Unknown]
